FAERS Safety Report 6417239-6 (Version None)
Quarter: 2009Q4

REPORT INFORMATION
  Report Type: 
  Country: None (occurrence: None)
  Receive Date: 20091026
  Receipt Date: 20091009
  Transmission Date: 20100525
  Serious: Yes (Hospitalization, Other)
  Sender: FDA-Public Use
  Company Number: 2009003091

PATIENT
  Age: 72 Year
  Sex: Male
  Weight: 47.7 kg

DRUGS (7)
  1. ERLOTINIB HYDROCHLORIDE [Suspect]
     Indication: NON-SMALL CELL LUNG CANCER
     Dosage: (150 MG,QD),ORAL
     Route: 048
     Dates: start: 20090904, end: 20090914
  2. PEMETREXED DISODIUM [Suspect]
     Indication: NON-SMALL CELL LUNG CANCER
     Dosage: INTRAVENOUS
     Route: 042
     Dates: start: 20090812
  3. PANTOSIN (PANTETHINE) [Concomitant]
  4. MAGNESIUM OXIDE (MAGNESIUM OXIDE) [Concomitant]
  5. MS CONTIN [Concomitant]
  6. NOVAMIN (PROCHLORPERAZINE) [Concomitant]
  7. BROCIN-CODEINE (BROCIN-CODEINE) [Concomitant]

REACTIONS (4)
  - MALIGNANT NEOPLASM PROGRESSION [None]
  - NON-SMALL CELL LUNG CANCER [None]
  - PLATELET COUNT DECREASED [None]
  - PYREXIA [None]
